FAERS Safety Report 8517064-6 (Version None)
Quarter: 2012Q3

REPORT INFORMATION
  Report Type: 
  Country: None (occurrence: None)
  Receive Date: 20120718
  Receipt Date: 20120712
  Transmission Date: 20120928
  Serious: Yes (Other)
  Sender: FDA-Public Use
  Company Number: US-BAYER-2012-070684

PATIENT
  Age: 37 Year
  Sex: Female
  Weight: 113.38 kg

DRUGS (11)
  1. PREVACID [Concomitant]
  2. DIPHENHYDRAMINE HCL [Concomitant]
     Dosage: 25 MG, UNK
  3. ASMANEX TWISTHALER [Concomitant]
     Dosage: 220 MCG/INH ( INHALATIONUNK, UNK
  4. YAZ [Suspect]
     Indication: ENDOMETRIOSIS
  5. ALBUTEROL [Concomitant]
  6. FEXOFENADINE [Concomitant]
     Dosage: 180 MG, UNK
  7. PREDNISONE [Concomitant]
     Dosage: 10 MG, UNK
  8. NASONEX [Concomitant]
  9. NASACORT [Concomitant]
  10. SINGULAIR [Concomitant]
     Dosage: 10 MG, UNK
  11. XOPENEX [Concomitant]

REACTIONS (2)
  - DEEP VEIN THROMBOSIS [None]
  - PULMONARY EMBOLISM [None]
